FAERS Safety Report 5582880-X (Version None)
Quarter: 2008Q1

REPORT INFORMATION
  Report Type: 
  Country: None (occurrence: None)
  Receive Date: 20080107
  Receipt Date: 20071228
  Transmission Date: 20080703
  Serious: Yes (Hospitalization)
  Sender: FDA-Public Use
  Company Number: US-BAYER-200717305NA

PATIENT
  Age: 39 Year
  Sex: Male
  Weight: 80 kg

DRUGS (8)
  1. CAMPATH [Suspect]
     Indication: ACUTE LYMPHOCYTIC LEUKAEMIA
     Route: 058
     Dates: start: 20071221
  2. METHOTREXATE [Suspect]
     Indication: ACUTE LYMPHOCYTIC LEUKAEMIA
     Route: 042
     Dates: start: 20071221
  3. METHOTREXATE [Suspect]
     Route: 042
  4. VINCRISTINE [Suspect]
     Indication: ACUTE LYMPHOCYTIC LEUKAEMIA
     Route: 040
     Dates: start: 20071222
  5. ELSPAR [Suspect]
     Indication: ACUTE LYMPHOCYTIC LEUKAEMIA
     Route: 030
     Dates: start: 20071222
  6. DEXAMETHASONE TAB [Suspect]
     Indication: ACUTE LYMPHOCYTIC LEUKAEMIA
     Dosage: TOTAL DAILY DOSE: 12 MG
     Route: 048
     Dates: start: 20071221
  7. BACTRIM DS [Concomitant]
     Indication: INFECTION PROPHYLAXIS
     Route: 048
  8. FAMCICLOVIR [Concomitant]
     Indication: INFECTION PROPHYLAXIS
     Route: 048

REACTIONS (9)
  - COORDINATION ABNORMAL [None]
  - DEHYDRATION [None]
  - FATIGUE [None]
  - HYPERGLYCAEMIA [None]
  - HYPONATRAEMIA [None]
  - NEUTROPHIL COUNT DECREASED [None]
  - PLATELET COUNT DECREASED [None]
  - VISION BLURRED [None]
  - WHITE BLOOD CELL COUNT DECREASED [None]
